FAERS Safety Report 11295166 (Version 4)
Quarter: 2017Q2

REPORT INFORMATION
  Report Type: Report from Study
  Country: US (occurrence: US)
  Receive Date: 20150723
  Receipt Date: 20170509
  Transmission Date: 20170829
  Serious: No
  Sender: FDA-Public Use
  Company Number: US-AMGEN-USASP2015070486

PATIENT
  Age: 52 Year
  Sex: Male

DRUGS (2)
  1. ENBREL [Suspect]
     Active Substance: ETANERCEPT
     Dosage: 50 MG, QWK
     Route: 065
     Dates: start: 2015
  2. ENBREL [Suspect]
     Active Substance: ETANERCEPT
     Indication: RHEUMATOID ARTHRITIS
     Dosage: UNK UNK, UNK
     Route: 065
     Dates: start: 2005, end: 201504

REACTIONS (9)
  - Pain in extremity [Unknown]
  - Grip strength decreased [Unknown]
  - Drug dose omission [Unknown]
  - Back pain [Unknown]
  - Condition aggravated [Unknown]
  - Pain [Recovering/Resolving]
  - Therapeutic response decreased [Unknown]
  - Neck pain [Unknown]
  - Muscular weakness [Unknown]

NARRATIVE: CASE EVENT DATE: 2015
